FAERS Safety Report 10598143 (Version 4)
Quarter: 2014Q4

REPORT INFORMATION
  Report Type: Report from Study
  Country: IL (occurrence: IL)
  Receive Date: 20141121
  Receipt Date: 20141223
  Transmission Date: 20150529
  Serious: Yes (Life-Threatening, Hospitalization, Disabling)
  Sender: FDA-Public Use
  Company Number: IL-ARIAD-2014IL003686

PATIENT

DRUGS (1)
  1. PONATINIB [Suspect]
     Active Substance: PONATINIB
     Indication: BREAST SARCOMA METASTATIC
     Dosage: 45 MG, QD
     Route: 048
     Dates: start: 20140817, end: 20140823

REACTIONS (3)
  - Cardiac failure congestive [Recovered/Resolved with Sequelae]
  - Product use issue [Unknown]
  - Oedema peripheral [Recovered/Resolved with Sequelae]

NARRATIVE: CASE EVENT DATE: 20140817
